FAERS Safety Report 8962420 (Version 1)
Quarter: 2012Q4

REPORT INFORMATION
  Report Type: 
  Country: DE (occurrence: DE)
  Receive Date: 20121213
  Receipt Date: 20121213
  Transmission Date: 20130627
  Serious: Yes (Other)
  Sender: FDA-Public Use
  Company Number: DE-VERTEX PHARMACEUTICALS INC.-2012-026123

PATIENT

DRUGS (3)
  1. INCIVO [Suspect]
     Indication: HEPATITIS C
     Dosage: Dosage Form: Tablet
     Route: 048
  2. PEGINTERFERON ALFA 2A [Suspect]
     Indication: HEPATITIS C
     Route: 065
  3. RIBAVIRIN [Suspect]
     Indication: HEPATITIS C
     Route: 065

REACTIONS (7)
  - Bradyarrhythmia [Unknown]
  - Cauda equina syndrome [Unknown]
  - Pyrexia [Unknown]
  - Biopsy prostate [Unknown]
  - Prostatitis [Unknown]
  - Venous occlusion [Unknown]
  - Thrombocytopenia [Unknown]
